FAERS Safety Report 11495818 (Version 2)
Quarter: 2020Q1

REPORT INFORMATION
  Report Type: Spontaneous
  Country: US (occurrence: US)
  Receive Date: 20150911
  Receipt Date: 20200218
  Transmission Date: 20200409
  Serious: No
  Sender: FDA-Public Use
  Company Number: US-PFIZER INC-2015295377

PATIENT
  Age: 61 Year
  Sex: Male

DRUGS (2)
  1. INLYTA [Suspect]
     Active Substance: AXITINIB
     Indication: RENAL CANCER
     Dosage: 5 MG, UNK
     Dates: start: 20150817
  2. INLYTA [Suspect]
     Active Substance: AXITINIB
     Indication: MESOTHELIOMA
     Dosage: 2 MG (1 MG 2 TABLETS), ONCE A DAY (QD)
     Route: 048
     Dates: start: 20190819, end: 20200203

REACTIONS (2)
  - Neoplasm progression [Unknown]
  - Diarrhoea [Unknown]
